FAERS Safety Report 8085707-X (Version None)
Quarter: 2012Q1

REPORT INFORMATION
  Report Type: 
  Country: None (occurrence: None)
  Receive Date: 20120128
  Receipt Date: 20110531
  Transmission Date: 20120608
  Serious: No
  Sender: FDA-Public Use
  Company Number: US-ABBOTT-11P-163-0729999-00

PATIENT
  Age: 74 Year
  Sex: Male

DRUGS (3)
  1. LORTAB [Concomitant]
     Indication: PRODUCT USED FOR UNKNOWN INDICATION
     Dates: start: 20110520
  2. GABAPENTIN [Concomitant]
     Indication: NEURALGIA
     Dates: start: 20110520
  3. HUMIRA [Suspect]
     Indication: RHEUMATOID ARTHRITIS
     Route: 058
     Dates: start: 20110518

REACTIONS (5)
  - FAECES HARD [None]
  - PAINFUL DEFAECATION [None]
  - DIARRHOEA [None]
  - CONSTIPATION [None]
  - ABDOMINAL PAIN [None]
